FAERS Safety Report 9328849 (Version 1)
Quarter: 2013Q2

REPORT INFORMATION
  Report Type: Spontaneous
  Country: FR (occurrence: FR)
  Receive Date: 20130604
  Receipt Date: 20130604
  Transmission Date: 20140414
  Serious: Yes (Hospitalization)
  Sender: FDA-Public Use
  Company Number: FR-BRISTOL-MYERS SQUIBB COMPANY-18971838

PATIENT
  Age: 84 Year
  Sex: Female

DRUGS (9)
  1. COUMADINE [Suspect]
  2. BISOPROLOL [Concomitant]
     Dosage: 7.5 DOSE UNITS NOT SPECIFIED
  3. CRESTOR [Concomitant]
     Dosage: 5(UNITS NOT SPECIFIED)
  4. HEMIGOXINE NATIVELLE [Concomitant]
  5. LASILIX [Concomitant]
     Dosage: 40 (UNITS NOT SPECIFIED)
  6. PERINDOPRIL [Concomitant]
     Dosage: 2 (UNITS NOT SPECIFIED)
  7. SEROPLEX [Concomitant]
     Dosage: 10 (UNITS NOT SPECIFIED)
  8. STILNOX [Concomitant]
  9. EXELON [Concomitant]

REACTIONS (3)
  - Rectal haemorrhage [Recovered/Resolved]
  - Overdose [Recovered/Resolved]
  - Gastric ulcer [Recovered/Resolved]
